FAERS Safety Report 17615067 (Version 2)
Quarter: 2020Q2

REPORT INFORMATION
  Report Type: Spontaneous
  Country: US (occurrence: US)
  Receive Date: 20200402
  Receipt Date: 20200413
  Transmission Date: 20200713
  Serious: No
  Sender: FDA-Public Use
  Company Number: US-PFIZER INC-2020134912

PATIENT
  Age: 36 Year
  Sex: Female

DRUGS (1)
  1. EUCRISA [Suspect]
     Active Substance: CRISABOROLE
     Indication: ECZEMA
     Dosage: UNK
     Dates: start: 202003

REACTIONS (6)
  - Incorrect route of product administration [Unknown]
  - Drug hypersensitivity [Recovering/Resolving]
  - Lacrimation increased [Unknown]
  - Product physical issue [Unknown]
  - Application site pain [Recovered/Resolved]
  - Seborrhoea [Unknown]
